FAERS Safety Report 6676596-6 (Version None)
Quarter: 2010Q2

REPORT INFORMATION
  Report Type: 
  Country: None (occurrence: None)
  Receive Date: 20100412
  Receipt Date: 20090512
  Transmission Date: 20101027
  Serious: Yes (Hospitalization)
  Sender: FDA-Public Use
  Company Number: PHHY2009TW61137

PATIENT

DRUGS (1)
  1. GLEEVEC [Suspect]
     Dosage: 400 MG, UNK

REACTIONS (2)
  - DRY SKIN [None]
  - SPLEEN DISORDER [None]
